FAERS Safety Report 8580956 (Version 2)
Quarter: 2012Q4

REPORT INFORMATION
  Report Type: 
  Country: US (occurrence: US)
  Receive Date: 20120525
  Receipt Date: 20120904
  Transmission Date: 20130627
  Serious: Yes (Hospitalization)
  Sender: FDA-Public Use
  Company Number: US-ASTRAZENECA-2012SE31275

PATIENT
  Age: 56 Year
  Sex: Female
  Weight: 77.1 kg

DRUGS (24)
  1. SEROQUEL [Suspect]
     Indication: AFFECTIVE DISORDER
     Route: 048
  2. SEROQUEL [Suspect]
     Indication: DRUG THERAPY ENHANCEMENT
     Route: 048
  3. SEROQUEL [Suspect]
     Indication: DEPRESSION
     Route: 048
  4. SEROQUEL [Suspect]
     Indication: AFFECTIVE DISORDER
     Route: 048
  5. SEROQUEL [Suspect]
     Indication: DRUG THERAPY ENHANCEMENT
     Route: 048
  6. CITALOPRAM [Concomitant]
  7. VALIUM [Concomitant]
  8. RANITIDINE [Concomitant]
  9. VISARIL [Concomitant]
  10. TRAZADONE [Concomitant]
  11. ESTROGEN [Concomitant]
  12. SAVELLA [Concomitant]
  13. ZOLOFT [Concomitant]
  14. LORTAB [Concomitant]
  15. ALBUTEROL INHALER [Concomitant]
  16. ADVAIR DISKUS [Concomitant]
  17. KCL [Concomitant]
  18. SEROQUEL [Suspect]
     Indication: DEPRESSION
     Route: 048
     Dates: start: 2011
  19. SEROQUEL [Suspect]
     Indication: AFFECTIVE DISORDER
     Route: 048
     Dates: start: 2011
  20. SEROQUEL [Suspect]
     Indication: DRUG THERAPY ENHANCEMENT
     Route: 048
     Dates: start: 2011
  21. SEROQUEL [Suspect]
     Indication: DEPRESSION
     Route: 048
  22. SEROQUEL [Suspect]
     Indication: AFFECTIVE DISORDER
     Route: 048
  23. SEROQUEL [Suspect]
     Indication: DRUG THERAPY ENHANCEMENT
     Route: 048
  24. SEROQUEL [Suspect]
     Indication: DEPRESSION
     Route: 048

REACTIONS (12)
  - Depression [Unknown]
  - Adverse event [Unknown]
  - Fibromyalgia [Unknown]
  - Emphysema [Unknown]
  - Gastrooesophageal reflux disease [Unknown]
  - Ulcer [Unknown]
  - Crying [Unknown]
  - Somnolence [Unknown]
  - Oedema peripheral [Unknown]
  - Intentional drug misuse [Unknown]
  - Drug dose omission [Unknown]
  - Off label use [Unknown]
